FAERS Safety Report 8183571 (Version 2)
Quarter: 2014Q1

REPORT INFORMATION
  Report Type: Spontaneous
  Country: US (occurrence: US)
  Receive Date: 20111017
  Receipt Date: 20140129
  Transmission Date: 20141002
  Serious: Yes (Other)
  Sender: FDA-Public Use
  Company Number: US-ROCHE-785833

PATIENT
  Sex: Male
  Weight: 83.99 kg

DRUGS (3)
  1. ACCUTANE [Suspect]
     Indication: ACNE
     Route: 065
     Dates: start: 20020321, end: 20020915
  2. EFFEXOR XR [Concomitant]
     Route: 065
     Dates: start: 19971024
  3. IMIPRAMINE [Concomitant]
     Route: 065
     Dates: start: 19971023

REACTIONS (7)
  - Crohn^s disease [Unknown]
  - Colitis ulcerative [Unknown]
  - Inflammatory bowel disease [Unknown]
  - Panic attack [Unknown]
  - Depression [Unknown]
  - Large intestine polyp [Unknown]
  - Irritable bowel syndrome [Unknown]
